FAERS Safety Report 7279237-2 (Version None)
Quarter: 2011Q1

REPORT INFORMATION
  Report Type: 
  Country: None (occurrence: None)
  Receive Date: 20110207
  Receipt Date: 20110201
  Transmission Date: 20110831
  Serious: Yes (Other)
  Sender: FDA-Public Use
  Company Number: PL-PFIZER INC-2011023619

PATIENT
  Age: 74 Year
  Sex: Female
  Weight: 69 kg

DRUGS (2)
  1. ZYVOX [Suspect]
     Indication: ENTEROCOCCAL INFECTION
     Dosage: 1.2 G, UNK
     Route: 042
     Dates: start: 20110105, end: 20110115
  2. TIENAM [Suspect]
     Indication: SEPSIS
     Route: 042
     Dates: start: 20110105, end: 20110115

REACTIONS (3)
  - HEMIANOPIA [None]
  - THROMBOCYTOPENIA [None]
  - PARESIS [None]
